FAERS Safety Report 20940451 (Version 2)
Quarter: 2023Q1

REPORT INFORMATION
  Report Type: Report from Study
  Country: JP (occurrence: JP)
  Receive Date: 20220609
  Receipt Date: 20230208
  Transmission Date: 20230418
  Serious: Yes (Hospitalization, Other)
  Sender: FDA-Public Use
  Company Number: JP-BRISTOL-MYERS SQUIBB COMPANY-2022-023527

PATIENT
  Age: 62 Year
  Sex: Female
  Weight: 57.9 kg

DRUGS (18)
  1. BMS-986310 [Suspect]
     Active Substance: BMS-986310
     Indication: Colorectal cancer
     Dosage: CUMULATIVE DOSAGE: 7240MG
     Route: 048
     Dates: start: 20211010, end: 20220410
  2. BMS-986310 [Suspect]
     Active Substance: BMS-986310
     Dosage: CUMULATIVE DOSAGE: 7240MG
     Route: 048
     Dates: start: 20220502
  3. COMIRNATY [Suspect]
     Active Substance: TOZINAMERAN
     Indication: Colorectal cancer
     Dosage: UNK
     Route: 030
     Dates: start: 20220408
  4. BEVACIZUMAB [Suspect]
     Active Substance: BEVACIZUMAB
     Indication: Colorectal cancer
     Dosage: 7.5 MG/KG, Q3W
     Dates: start: 20211012
  5. BEVACIZUMAB [Suspect]
     Active Substance: BEVACIZUMAB
     Dosage: 7.5 MG/KG, Q3W
     Dates: start: 20220502
  6. OXALIPLATIN [Suspect]
     Active Substance: OXALIPLATIN
     Indication: Colorectal cancer
     Dosage: 130 MG/M2, Q3W
     Dates: start: 20211012
  7. CAPECITABINE [Suspect]
     Active Substance: CAPECITABINE
     Indication: Colorectal cancer
     Dosage: 1000 MG/M2, Q12H, 14 DAYS ADMINISTRATION, 7 DAYS
     Route: 048
     Dates: start: 20211012
  8. CAPECITABINE [Suspect]
     Active Substance: CAPECITABINE
     Dosage: 1000 MG/M2, Q12H, 14 DAYS ADMINISTRATION, 7 DAYS
     Route: 048
     Dates: start: 20220502
  9. LEVOTHYROXINE SODIUM [Concomitant]
     Active Substance: LEVOTHYROXINE SODIUM
     Indication: Hypothyroidism
     Dosage: 100 G, EVERYDAY, BEFORE SLEEP
     Route: 048
     Dates: start: 20220330, end: 20220419
  10. LEVOTHYROXINE SODIUM [Concomitant]
     Active Substance: LEVOTHYROXINE SODIUM
     Dosage: 125 G, EVERYDAY, BEFORE SLEEP
     Route: 048
     Dates: start: 20220420
  11. LEVOTHYROXINE SODIUM [Concomitant]
     Active Substance: LEVOTHYROXINE SODIUM
     Dosage: 150 G, EVERYDAY, WAKING UP
     Route: 048
     Dates: start: 20220622
  12. MAGNESIUM OXIDE [Concomitant]
     Active Substance: MAGNESIUM OXIDE
     Indication: Constipation prophylaxis
     Dosage: 660 MG, Q12H, AFTER BREAKFAST AND LUNCH
     Route: 048
     Dates: start: 2021
  13. OXALIPLATIN [Concomitant]
     Active Substance: OXALIPLATIN
     Indication: Colorectal cancer
     Dates: start: 20211012
  14. NEXIUM [Concomitant]
     Active Substance: ESOMEPRAZOLE MAGNESIUM
     Indication: Prophylaxis against gastrointestinal ulcer
     Dosage: 20 MG, EVERYDAY, AFTER BREAKFAST
     Route: 048
     Dates: start: 20220330
  15. VONOPRAZAN FUMARATE [Concomitant]
     Active Substance: VONOPRAZAN FUMARATE
     Indication: Gastric ulcer
     Dosage: 20 MG, EVERY DAY, AFTER DINNER
     Route: 048
     Dates: start: 20221004
  16. LOXOPROFEN [Concomitant]
     Active Substance: LOXOPROFEN
     Indication: Pain in extremity
     Dosage: UNK, PRN
     Route: 048
     Dates: start: 20221007
  17. HEPARINOID [Concomitant]
     Indication: Prophylaxis
     Dosage: UNK, PRN
     Route: 061
     Dates: start: 20211013
  18. HEPARINOID [Concomitant]
     Dosage: UNK, PRN
     Route: 061
     Dates: start: 20211013

REACTIONS (3)
  - Fulminant type 1 diabetes mellitus [Not Recovered/Not Resolved]
  - Urinary tract infection [Recovered/Resolved]
  - Gastric ulcer [Recovering/Resolving]

NARRATIVE: CASE EVENT DATE: 20220411
